FAERS Safety Report 4474103-X (Version None)
Quarter: 2004Q4

REPORT INFORMATION
  Report Type: 
  Country: None (occurrence: None)
  Receive Date: 20041008
  Receipt Date: 20040921
  Transmission Date: 20050328
  Serious: Yes (Hospitalization)
  Sender: FDA-Public Use
  Company Number: WAES 0408HUN00010

PATIENT
  Age: 76 Year
  Sex: Male

DRUGS (5)
  1. COZAAR [Suspect]
     Indication: CARDIAC FAILURE
     Dosage: PO
     Route: 048
     Dates: start: 20040430
  2. ZOCOR [Concomitant]
  3. BISOPROLOL FUMARATE [Concomitant]
  4. SPIRONOLACTONE [Concomitant]
  5. WARFARIN SODIUM [Concomitant]

REACTIONS (9)
  - ANAEMIA [None]
  - BRADYCARDIA [None]
  - CEREBRAL ATROPHY [None]
  - CIRCULATORY COLLAPSE [None]
  - ENCEPHALOPATHY [None]
  - HIP FRACTURE [None]
  - HYPOTENSION [None]
  - POST PROCEDURAL PAIN [None]
  - PROCEDURAL COMPLICATION [None]
